FAERS Safety Report 10221855 (Version 2)
Quarter: 2014Q4

REPORT INFORMATION
  Report Type: Spontaneous
  Country: IT (occurrence: IT)
  Receive Date: 20140606
  Receipt Date: 20141001
  Transmission Date: 20150528
  Serious: Yes (Hospitalization)
  Sender: FDA-Public Use
  Company Number: IT-B.I. PHARMACEUTICALS,INC./RIDGEFIELD-2014-BI-25470YA

PATIENT
  Age: 33 Year
  Sex: Female

DRUGS (1)
  1. OMNIC [Suspect]
     Active Substance: TAMSULOSIN HYDROCHLORIDE
     Indication: RENAL COLIC
     Dosage: 0.4 MG
     Route: 048
     Dates: start: 20130113, end: 20130113

REACTIONS (4)
  - Pruritus [Not Recovered/Not Resolved]
  - Lip oedema [Not Recovered/Not Resolved]
  - Product use issue [Unknown]
  - Choking sensation [Not Recovered/Not Resolved]

NARRATIVE: CASE EVENT DATE: 20130113
